FAERS Safety Report 4792511-4 (Version None)
Quarter: 2005Q4

REPORT INFORMATION
  Report Type: 
  Country: None (occurrence: None)
  Receive Date: 20051010
  Receipt Date: 20050930
  Transmission Date: 20060501
  Serious: Yes (Other)
  Sender: FDA-Public Use
  Company Number: JP-JNJFOC-20050803265

PATIENT
  Sex: Female

DRUGS (11)
  1. ITRACONAZOLE [Suspect]
     Route: 048
  2. ITRACONAZOLE [Suspect]
     Indication: ONYCHOMYCOSIS
     Route: 048
  3. PAROXETINE HCL [Concomitant]
     Indication: DEPRESSION
     Route: 048
  4. BROMAZEPAM [Concomitant]
     Indication: DEPRESSION
     Route: 048
  5. ZOLPIDEM TARTRATE [Concomitant]
     Indication: DEPRESSION
     Route: 048
  6. FLAVIN ADENINE DINUCLEOTIDE [Concomitant]
     Route: 048
  7. MOSAPRIDE CITRATE [Concomitant]
     Route: 048
  8. ALPRAZOLAM [Concomitant]
     Indication: DEPRESSION
     Route: 048
  9. PLAUNOTOL [Concomitant]
     Route: 048
  10. PLAUNOTOL [Concomitant]
     Indication: ONYCHOMYCOSIS
     Route: 048
  11. ETHYL LOFLAZEPATE [Concomitant]
     Indication: DEPRESSION
     Dates: start: 20050506

REACTIONS (6)
  - ABORTION SPONTANEOUS [None]
  - CARDIAC ARREST [None]
  - DRUG EXPOSURE DURING PREGNANCY [None]
  - FOETAL DISORDER [None]
  - INCORRECT DOSE ADMINISTERED [None]
  - OVERDOSE [None]
